FAERS Safety Report 6216749-4 (Version None)
Quarter: 2009Q2

REPORT INFORMATION
  Report Type: 
  Country: None (occurrence: None)
  Receive Date: 20090605
  Receipt Date: 20090528
  Transmission Date: 20091009
  Serious: Yes (Other)
  Sender: FDA-Public Use
  Company Number: PHHY2009SE20989

PATIENT
  Sex: Male

DRUGS (3)
  1. LEPONEX [Suspect]
     Dosage: UNK
  2. LEPONEX [Suspect]
     Dosage: 375 MG
  3. LEPONEX [Suspect]
     Dosage: 275 MG

REACTIONS (4)
  - AGGRESSION [None]
  - DISABILITY [None]
  - MENTAL IMPAIRMENT [None]
  - PLATELET COUNT DECREASED [None]
